FAERS Safety Report 6805099-0 (Version None)
Quarter: 2010Q2

REPORT INFORMATION
  Report Type: 
  Country: None (occurrence: None)
  Receive Date: 20100628
  Receipt Date: 20070829
  Transmission Date: 20101027
  Serious: No
  Sender: FDA-Public Use
  Company Number: US-PFIZER INC-2007072250

PATIENT
  Sex: Male
  Weight: 86 kg

DRUGS (1)
  1. SUTENT [Suspect]
     Indication: RENAL CELL CARCINOMA
     Dates: start: 20070701

REACTIONS (3)
  - FATIGUE [None]
  - INSOMNIA [None]
  - PLATELET COUNT DECREASED [None]
